FAERS Safety Report 14716432 (Version 1)
Quarter: 2018Q2

REPORT INFORMATION
  Report Type: Other
  Country: US (occurrence: TR)
  Receive Date: 20180404
  Receipt Date: 20180404
  Transmission Date: 20180711
  Serious: Yes (Hospitalization, Other)
  Sender: FDA-Public Use
  Company Number: TR-BRECKENRIDGE PHARMACEUTICAL, INC.-2045118

PATIENT
  Age: 45 Year
  Sex: Female

DRUGS (3)
  1. CHLORAMPHENICOL SODIUM SUCCINATE. [Concomitant]
     Active Substance: CHLORAMPHENICOL SODIUM SUCCINATE
  2. MEROPENEM. [Concomitant]
     Active Substance: MEROPENEM
  3. LEVETIRACETAM. [Suspect]
     Active Substance: LEVETIRACETAM
     Indication: SEIZURE

REACTIONS (5)
  - Immunodeficiency [Recovered/Resolved]
  - B-lymphocyte count abnormal [Recovered/Resolved]
  - Pyrexia [Recovered/Resolved]
  - Headache [Recovered/Resolved]
  - Hypogammaglobulinaemia [Recovered/Resolved]
